FAERS Safety Report 8901268 (Version 1)
Quarter: 2012Q4

REPORT INFORMATION
  Report Type: 
  Country: CH (occurrence: CH)
  Receive Date: 20121108
  Receipt Date: 20121108
  Transmission Date: 20130627
  Serious: Yes (Other)
  Sender: FDA-Public Use
  Company Number: CH-BAXTER-2012BAX022219

PATIENT
  Sex: Male
  Weight: .98 kg

DRUGS (5)
  1. SUPRANE [Suspect]
     Indication: DRUG EXPOSURE IN UTERO
     Route: 064
     Dates: start: 20120911, end: 20120911
  2. METHYLENE BLUE [Suspect]
     Indication: DRUG EXPOSURE IN UTERO
     Route: 064
     Dates: start: 20120911, end: 20120911
  3. ESMERON [Suspect]
     Indication: DRUG EXPOSURE IN UTERO
     Route: 064
     Dates: start: 20120911, end: 20120911
  4. ACETAMINOPHEN [Suspect]
     Indication: DRUG EXPOSURE IN UTERO
     Route: 064
     Dates: start: 20120911, end: 20120911
  5. PROPOFOL [Suspect]
     Indication: DRUG EXPOSURE IN UTERO
     Route: 064
     Dates: start: 20120911, end: 20120911

REACTIONS (3)
  - Premature baby [Unknown]
  - Amniotic cavity infection [Recovered/Resolved]
  - Foetal exposure during pregnancy [Recovered/Resolved]
